FAERS Safety Report 13754236 (Version 1)
Quarter: 2017Q3

REPORT INFORMATION
  Report Type: Spontaneous
  Country: US (occurrence: US)
  Receive Date: 20170714
  Receipt Date: 20170714
  Transmission Date: 20171127
  Serious: Yes (Other)
  Sender: FDA-Public Use
  Company Number: US-LPDUSPRD-20170969

PATIENT
  Age: 68 Year
  Sex: Male

DRUGS (1)
  1. ADENOSINE INJECTION, USP (6404-10) [Suspect]
     Active Substance: ADENOSINE
     Dosage: 140 UG/KG/MIN
     Route: 065

REACTIONS (1)
  - Myocardial infarction [Unknown]
